FAERS Safety Report 6434919-7 (Version None)
Quarter: 2009Q4

REPORT INFORMATION
  Report Type: 
  Country: None (occurrence: None)
  Receive Date: 20091110
  Receipt Date: 20091026
  Transmission Date: 20100525
  Serious: Yes (Other)
  Sender: FDA-Public Use
  Company Number: CA-GENENTECH-293433

PATIENT
  Sex: Male

DRUGS (3)
  1. XOLAIR [Suspect]
     Indication: DRUG USE FOR UNKNOWN INDICATION
     Dosage: 300 MG, 1/MONTH
     Dates: start: 20090903
  2. XOLAIR [Suspect]
     Dosage: 300 MG, 1/MONTH
  3. XOLAIR [Suspect]
     Dosage: 300 MG, 1/MONTH
     Dates: start: 20091009

REACTIONS (1)
  - RASH PAPULAR [None]
